FAERS Safety Report 18051480 (Version 1)
Quarter: 2020Q3

REPORT INFORMATION
  Report Type: Spontaneous
  Country: BR (occurrence: BR)
  Receive Date: 20200721
  Receipt Date: 20200721
  Transmission Date: 20201103
  Serious: Yes (Disabling, Other)
  Sender: FDA-Public Use
  Company Number: NVSC2020BR195002

PATIENT
  Sex: Female

DRUGS (3)
  1. TRAVATAN [Suspect]
     Active Substance: TRAVOPROST
     Indication: GLAUCOMA
     Dosage: 1 GTT, QD (START DATE 3 MONTH AGO AND STOP DATE 2 MONTHS AGO)
     Route: 047
  2. DUO TRAVATAN [Suspect]
     Active Substance: TIMOLOL MALEATE\TRAVOPROST
     Indication: GLAUCOMA
     Dosage: 1 GTT, QD (STARTED 3 YEARS AGO AND STOPPED 3 MONTHS AGO)
     Route: 047
  3. XALATAN [Concomitant]
     Active Substance: LATANOPROST
     Indication: GLAUCOMA
     Dosage: 1 GTT, QD (STARTED 2 MONTHS AGO AND STOPPED 1 MOTH AGO)
     Route: 047

REACTIONS (7)
  - Depressed mood [Not Recovered/Not Resolved]
  - Drug ineffective [Unknown]
  - Visual impairment [Not Recovered/Not Resolved]
  - Hypertension [Not Recovered/Not Resolved]
  - Product dose omission issue [Unknown]
  - Blindness unilateral [Not Recovered/Not Resolved]
  - Eye irritation [Not Recovered/Not Resolved]
